FAERS Safety Report 15928763 (Version 2)
Quarter: 2019Q2

REPORT INFORMATION
  Report Type: Spontaneous
  Country: US (occurrence: US)
  Receive Date: 20190206
  Receipt Date: 20190607
  Transmission Date: 20190711
  Serious: Yes (Hospitalization, Other)
  Sender: FDA-Public Use
  Company Number: US-ASTRAZENECA-2019SE17480

PATIENT
  Age: 20438 Day

DRUGS (13)
  1. LEVOFLOXACIN. [Concomitant]
     Active Substance: LEVOFLOXACIN
  2. ONGLYZA [Suspect]
     Active Substance: SAXAGLIPTIN HYDROCHLORIDE
     Indication: TYPE 2 DIABETES MELLITUS
     Route: 048
     Dates: start: 2013, end: 201703
  3. LANTUS [Concomitant]
     Active Substance: INSULIN GLARGINE
  4. CITALOPRAM [Concomitant]
     Active Substance: CITALOPRAM HYDROBROMIDE
  5. FLUOCINOLONE [Concomitant]
     Active Substance: FLUOCINOLONE
  6. GABAPENTIN. [Concomitant]
     Active Substance: GABAPENTIN
  7. ISOSORBIDE. [Concomitant]
     Active Substance: ISOSORBIDE
  8. LISINOPRIL. [Concomitant]
     Active Substance: LISINOPRIL
  9. SULFAMETHOXAZOLE [Concomitant]
     Active Substance: SULFAMETHOXAZOLE
  10. NAPROXEN. [Concomitant]
     Active Substance: NAPROXEN
  11. CITALOPRAM [Concomitant]
     Active Substance: CITALOPRAM HYDROBROMIDE
  12. METOPROLOL. [Concomitant]
     Active Substance: METOPROLOL
  13. NOVOLOG [Concomitant]
     Active Substance: INSULIN ASPART

REACTIONS (6)
  - Cardiac failure congestive [Unknown]
  - Cardiac failure [Unknown]
  - Cardiac arrest [Unknown]
  - Coronary artery stenosis [Unknown]
  - Coronary artery disease [Unknown]
  - Acute myocardial infarction [Unknown]

NARRATIVE: CASE EVENT DATE: 20170328
